FAERS Safety Report 9446016 (Version 1)
Quarter: 2013Q3

REPORT INFORMATION
  Report Type: Spontaneous
  Country: DK (occurrence: DK)
  Receive Date: 20130807
  Receipt Date: 20130807
  Transmission Date: 20140515
  Serious: Yes (Life-Threatening, Hospitalization)
  Sender: FDA-Public Use
  Company Number: DK-MYLANLABS-2013S1016885

PATIENT
  Age: 59 Year
  Sex: Female

DRUGS (2)
  1. PREDNISOLONE [Suspect]
     Indication: OESOPHAGEAL CARCINOMA
     Dosage: THEN INCREASED TO 50MG ONCE DAILY
     Route: 065
  2. PREDNISOLONE [Suspect]
     Indication: OESOPHAGEAL CARCINOMA
     Route: 065

REACTIONS (2)
  - Hyperglycaemic hyperosmolar nonketotic syndrome [Recovered/Resolved]
  - Cardiac arrest [Recovered/Resolved]
